FAERS Safety Report 9464071 (Version 3)
Quarter: 2013Q3

REPORT INFORMATION
  Report Type: Report from Study
  Country: SE (occurrence: SE)
  Receive Date: 20130819
  Receipt Date: 20130828
  Transmission Date: 20140515
  Serious: Yes (Hospitalization)
  Sender: FDA-Public Use
  Company Number: SE-SANOFI-AVENTIS-2013SA073335

PATIENT
  Age: 71 Year
  Sex: 0

DRUGS (4)
  1. CABAZITAXEL [Suspect]
     Indication: PROSTATE CANCER
     Route: 042
  2. CABAZITAXEL [Suspect]
     Indication: PROSTATE CANCER
     Route: 042
     Dates: start: 20130704, end: 20130704
  3. PREDNISONE [Suspect]
     Indication: PROSTATE CANCER
     Route: 048
  4. CELECOXIB [Concomitant]

REACTIONS (2)
  - Urinary retention [Recovered/Resolved with Sequelae]
  - Blood creatinine increased [Unknown]
